FAERS Safety Report 4829614-1 (Version None)
Quarter: 2005Q4

REPORT INFORMATION
  Report Type: 
  Country: None (occurrence: None)
  Receive Date: 20051027
  Receipt Date: 20050512
  Transmission Date: 20060501
  Serious: Yes (Other)
  Sender: FDA-Public Use
  Company Number: 200514161US

PATIENT

DRUGS (3)
  1. ARAVA [Suspect]
     Indication: TRANSPLANT
  2. TACROLIMUS [Concomitant]
  3. STEROIDS [Concomitant]

REACTIONS (1)
  - LUNG INFILTRATION [None]
